FAERS Safety Report 24136355 (Version 14)
Quarter: 2025Q2

REPORT INFORMATION
  Report Type: Spontaneous
  Country: US (occurrence: US)
  Receive Date: 20240725
  Receipt Date: 20250505
  Transmission Date: 20250717
  Serious: Yes (Other)
  Sender: CSL BEHRING
  Company Number: US-BEH-2024176214

PATIENT
  Age: 22 Year
  Sex: Male

DRUGS (10)
  1. HUMATE-P [Suspect]
     Active Substance: HUMAN COAGULATION FACTOR VIII/VON WILLEBRAND FACTOR COMPLEX
     Indication: Factor VIII deficiency
     Route: 042
     Dates: start: 201411
  2. HUMATE-P [Suspect]
     Active Substance: HUMAN COAGULATION FACTOR VIII/VON WILLEBRAND FACTOR COMPLEX
     Indication: Von Willebrand^s disease
     Route: 042
     Dates: start: 201411
  3. HUMATE-P [Suspect]
     Active Substance: HUMAN COAGULATION FACTOR VIII/VON WILLEBRAND FACTOR COMPLEX
     Indication: Factor VIII deficiency
     Route: 042
     Dates: start: 201411
  4. HUMATE-P [Suspect]
     Active Substance: HUMAN COAGULATION FACTOR VIII/VON WILLEBRAND FACTOR COMPLEX
     Route: 042
     Dates: start: 201411
  5. HUMATE-P [Suspect]
     Active Substance: HUMAN COAGULATION FACTOR VIII/VON WILLEBRAND FACTOR COMPLEX
     Route: 042
     Dates: start: 201411
  6. HUMATE-P [Suspect]
     Active Substance: HUMAN COAGULATION FACTOR VIII/VON WILLEBRAND FACTOR COMPLEX
     Route: 042
     Dates: start: 201411
  7. HUMATE-P [Suspect]
     Active Substance: HUMAN COAGULATION FACTOR VIII/VON WILLEBRAND FACTOR COMPLEX
     Route: 042
     Dates: start: 201411
  8. HUMATE-P [Suspect]
     Active Substance: HUMAN COAGULATION FACTOR VIII/VON WILLEBRAND FACTOR COMPLEX
     Route: 042
     Dates: start: 201411
  9. HUMATE-P [Suspect]
     Active Substance: HUMAN COAGULATION FACTOR VIII/VON WILLEBRAND FACTOR COMPLEX
     Route: 042
     Dates: start: 201411
  10. TRANEXAMIC ACID [Concomitant]
     Active Substance: TRANEXAMIC ACID

REACTIONS (26)
  - Intra-abdominal haematoma [Unknown]
  - Haemarthrosis [Recovered/Resolved]
  - Haemorrhage [Unknown]
  - Haemorrhage [Unknown]
  - Haemorrhage [Unknown]
  - Epistaxis [Unknown]
  - Orbital haemorrhage [Not Recovered/Not Resolved]
  - Orbital haemorrhage [Unknown]
  - Influenza [Unknown]
  - Orbital haemorrhage [Unknown]
  - Haemorrhage [Recovered/Resolved]
  - Haematemesis [Recovered/Resolved]
  - Epistaxis [Not Recovered/Not Resolved]
  - Epistaxis [Unknown]
  - Contusion [Unknown]
  - Joint swelling [Unknown]
  - Spontaneous haematoma [Recovered/Resolved]
  - Haematoma [Unknown]
  - Haematoma [Unknown]
  - Swelling face [Unknown]
  - Skin discolouration [Unknown]
  - Haematoma [Recovered/Resolved]
  - Vomiting [Recovered/Resolved]
  - Haemorrhage [Recovered/Resolved]
  - Peripheral swelling [Unknown]
  - Peripheral swelling [Unknown]

NARRATIVE: CASE EVENT DATE: 20240814
